FAERS Safety Report 15942262 (Version 3)
Quarter: 2019Q2

REPORT INFORMATION
  Report Type: Report from Study
  Country: DE (occurrence: DE)
  Receive Date: 20190210
  Receipt Date: 20190522
  Transmission Date: 20190711
  Serious: Yes (Other)
  Sender: FDA-Public Use
  Company Number: PHHY2019DE019752

PATIENT
  Age: 14 Year
  Sex: Female
  Weight: 56.3 kg

DRUGS (15)
  1. OMNITROPE [Suspect]
     Active Substance: SOMATROPIN
     Indication: GROWTH HORMONE DEFICIENCY
     Dosage: 1.8 MG, QD (15 MG/1.5 ML )
     Route: 058
     Dates: start: 20120215
  2. PROGYNOVA [Concomitant]
     Active Substance: ESTRADIOL VALERATE
     Indication: OVARIAN FAILURE
     Dosage: UNK
     Route: 048
     Dates: start: 20160211
  3. L-THYROXINE [Concomitant]
     Active Substance: LEVOTHYROXINE
     Indication: HYPOTHYROIDISM
     Dosage: UNK
     Route: 048
     Dates: start: 20080619
  4. CYCLO-PROGYNOVA [Concomitant]
     Indication: OVARIAN FAILURE
     Dosage: 1 TBL. /D VOM 1. - 21. TAG
     Route: 048
     Dates: start: 20170815
  5. ORFIRIL [Concomitant]
     Active Substance: VALPROATE SODIUM
     Indication: EPILEPSY
     Dosage: UNK
     Route: 048
     Dates: start: 20050615
  6. HIDROCORTISON [Concomitant]
     Active Substance: HYDROCORTISONE
     Indication: ADRENOCORTICOTROPIC HORMONE DEFICIENCY
     Dosage: UNK
     Route: 048
     Dates: start: 20081001
  7. HIDROCORTISON [Concomitant]
     Active Substance: HYDROCORTISONE
     Dosage: UNK, 7 - 4 - 4 MG/D
     Route: 048
     Dates: start: 20160816, end: 20180813
  8. OMNITROPE [Suspect]
     Active Substance: SOMATROPIN
     Dosage: 0.035 OT, UNK
     Route: 058
  9. HIDROCORTISON [Concomitant]
     Active Substance: HYDROCORTISONE
     Dosage: UNK, 10 - 4 - 4 MG
     Route: 048
     Dates: start: 20180814
  10. PROGYNOVA [Concomitant]
     Active Substance: ESTRADIOL VALERATE
     Indication: PROPHYLAXIS
     Dosage: UNK
     Route: 048
     Dates: start: 20150216
  11. L-THYROXINE [Concomitant]
     Active Substance: LEVOTHYROXINE
     Dosage: 50 OT, UNK
     Route: 048
     Dates: start: 20120210
  12. L-THYROXINE [Concomitant]
     Active Substance: LEVOTHYROXINE
     Dosage: 75 OT, UNK
     Route: 048
     Dates: start: 20160211
  13. HIDROCORTISON [Concomitant]
     Active Substance: HYDROCORTISONE
     Indication: BLOOD CORTICOTROPHIN DECREASED
     Dosage: UNK, 8-4-4 MG/DAY
     Route: 048
     Dates: start: 20170201
  14. HIDROCORTISON [Concomitant]
     Active Substance: HYDROCORTISONE
     Dosage: UNK, 10 - 5 - 4 MG/D
     Route: 048
     Dates: start: 20190219
  15. PROGYNOVA [Concomitant]
     Active Substance: ESTRADIOL VALERATE
     Dosage: 10 TR, UNK
     Dates: start: 20160816, end: 20170814

REACTIONS (3)
  - Blood glucose increased [Not Recovered/Not Resolved]
  - Glucose tolerance impaired [Not Recovered/Not Resolved]
  - Metabolic disorder [Not Recovered/Not Resolved]

NARRATIVE: CASE EVENT DATE: 20170815
